FAERS Safety Report 5141945-7 (Version None)
Quarter: 2006Q4

REPORT INFORMATION
  Report Type: 
  Country: None (occurrence: None)
  Receive Date: 20061102
  Receipt Date: 20061006
  Transmission Date: 20070319
  Serious: Yes (Other)
  Sender: FDA-Public Use
  Company Number: PHBS2006PE15568

PATIENT
  Age: 74 Year
  Sex: Female

DRUGS (6)
  1. PREXIGE [Concomitant]
     Indication: POLYNEUROPATHY
     Dosage: 400 MG/DAY
     Dates: start: 20061009
  2. LYRICA [Concomitant]
     Indication: POLYNEUROPATHY
     Dosage: 150 MG/DAY
     Dates: start: 20061009
  3. TRILEPTAL [Suspect]
     Indication: POLYNEUROPATHY
     Dosage: 600 MG, BID
     Route: 048
     Dates: start: 20060918
  4. TRILEPTAL [Suspect]
     Dosage: 2400 MG/DAY
     Route: 048
     Dates: start: 20061005, end: 20061005
  5. THYROID HORMONES [Concomitant]
     Indication: HYPOTHYROIDISM
  6. ANTIDEPRESSANTS [Concomitant]
     Indication: DEPRESSION

REACTIONS (4)
  - ABDOMINAL PAIN [None]
  - CHEST PAIN [None]
  - HYPOTHERMIA [None]
  - NAUSEA [None]
